FAERS Safety Report 18017901 (Version 1)
Quarter: 2020Q3

REPORT INFORMATION
  Report Type: Spontaneous
  Country: GB (occurrence: GB)
  Receive Date: 20200714
  Receipt Date: 20200714
  Transmission Date: 20201103
  Serious: Yes (Other)
  Sender: FDA-Public Use
  Company Number: GB-DRREDDYS-GER/UKI/20/0125019

PATIENT
  Age: 37 Year
  Sex: Male
  Weight: 95.25 kg

DRUGS (1)
  1. FEXOFENADINE [Suspect]
     Active Substance: FEXOFENADINE HYDROCHLORIDE
     Indication: SEASONAL ALLERGY
     Dosage: DURING HAY?FEVER SEASON.
     Route: 048
     Dates: start: 20170601

REACTIONS (2)
  - Back pain [Unknown]
  - Herpes zoster [Recovered/Resolved]
